FAERS Safety Report 23146236 (Version 1)
Quarter: 2023Q4

REPORT INFORMATION
  Report Type: Spontaneous
  Country: AU (occurrence: AU)
  Receive Date: 20231104
  Receipt Date: 20231104
  Transmission Date: 20240110
  Serious: Yes (Other)
  Sender: FDA-Public Use
  Company Number: AU-MLMSERVICE-2023102046133511

PATIENT
  Age: 40 Year
  Sex: Female

DRUGS (21)
  1. METHOTREXATE [Suspect]
     Active Substance: METHOTREXATE
     Indication: Nervous system disorder prophylaxis
     Dosage: HIGH DOSE
     Dates: start: 2011
  2. DOXORUBICIN [Suspect]
     Active Substance: DOXORUBICIN
     Indication: Metastases to lymph nodes
     Dates: start: 2011
  3. PREDNISONE [Suspect]
     Active Substance: PREDNISONE
     Indication: Diffuse large B-cell lymphoma stage IV
     Dates: start: 2011
  4. CYCLOPHOSPHAMIDE [Suspect]
     Active Substance: CYCLOPHOSPHAMIDE
     Indication: Diffuse large B-cell lymphoma stage IV
     Dates: start: 2011
  5. RITUXIMAB [Suspect]
     Active Substance: RITUXIMAB
     Indication: Metastases to lymph nodes
     Dates: start: 2011
  6. VINCRISTINE [Suspect]
     Active Substance: VINCRISTINE
     Indication: Diffuse large B-cell lymphoma stage IV
     Dates: start: 2011
  7. VINCRISTINE [Suspect]
     Active Substance: VINCRISTINE
     Indication: Metastases to lymph nodes
     Dates: start: 2011
  8. PREDNISONE [Suspect]
     Active Substance: PREDNISONE
     Indication: Metastases to bone marrow
     Dates: start: 2011
  9. DOXORUBICIN [Suspect]
     Active Substance: DOXORUBICIN
     Indication: Diffuse large B-cell lymphoma stage IV
     Dates: start: 2011
  10. PREDNISONE [Suspect]
     Active Substance: PREDNISONE
     Indication: Metastases to breast
     Dates: start: 2011
  11. PREDNISONE [Suspect]
     Active Substance: PREDNISONE
     Indication: Metastases to lymph nodes
     Dates: start: 2011
  12. CYCLOPHOSPHAMIDE [Suspect]
     Active Substance: CYCLOPHOSPHAMIDE
     Indication: Metastases to breast
     Dates: start: 2011
  13. CYCLOPHOSPHAMIDE [Suspect]
     Active Substance: CYCLOPHOSPHAMIDE
     Indication: Metastases to lymph nodes
     Dates: start: 2011
  14. RITUXIMAB [Suspect]
     Active Substance: RITUXIMAB
     Indication: Metastases to breast
     Dates: start: 2011
  15. RITUXIMAB [Suspect]
     Active Substance: RITUXIMAB
     Indication: Diffuse large B-cell lymphoma stage IV
     Dates: start: 2011
  16. VINCRISTINE [Suspect]
     Active Substance: VINCRISTINE
     Indication: Metastases to bone marrow
     Dates: start: 2011
  17. VINCRISTINE [Suspect]
     Active Substance: VINCRISTINE
     Indication: Metastases to breast
     Dates: start: 2011
  18. DOXORUBICIN [Suspect]
     Active Substance: DOXORUBICIN
     Indication: Metastases to breast
     Dates: start: 2011
  19. DOXORUBICIN [Suspect]
     Active Substance: DOXORUBICIN
     Indication: Metastases to bone marrow
     Dates: start: 2011
  20. CYCLOPHOSPHAMIDE [Suspect]
     Active Substance: CYCLOPHOSPHAMIDE
     Indication: Metastases to bone marrow
     Dates: start: 2011
  21. RITUXIMAB [Suspect]
     Active Substance: RITUXIMAB
     Indication: Metastases to bone marrow
     Dates: start: 2011

REACTIONS (1)
  - Acute myeloid leukaemia [Recovering/Resolving]

NARRATIVE: CASE EVENT DATE: 20130101
